FAERS Safety Report 19178729 (Version 1)
Quarter: 2021Q2

REPORT INFORMATION
  Report Type: Spontaneous
  Country: US (occurrence: US)
  Receive Date: 20210426
  Receipt Date: 20210426
  Transmission Date: 20210717
  Serious: No
  Sender: FDA-Public Use
  Company Number: US-009507513-2104USA006241

PATIENT
  Age: 66 Year
  Sex: Female

DRUGS (3)
  1. BELSOMRA [Suspect]
     Active Substance: SUVOREXANT
     Indication: INSOMNIA
     Dosage: 10 MILLIGRAM, ONCE NIGHTLY
     Route: 048
     Dates: start: 20210418
  2. LETROZOLE. [Concomitant]
     Active Substance: LETROZOLE
  3. FLUOCINOLONE ACETONIDE (+) HYDROQUINONE (+) TRETINOIN [Concomitant]

REACTIONS (2)
  - Somnolence [Not Recovered/Not Resolved]
  - Muscle spasms [Not Recovered/Not Resolved]

NARRATIVE: CASE EVENT DATE: 20210420
